FAERS Safety Report 11220165 (Version 8)
Quarter: 2016Q1

REPORT INFORMATION
  Report Type: Report from Study
  Country: FR (occurrence: FR)
  Receive Date: 20150625
  Receipt Date: 20160222
  Transmission Date: 20160525
  Serious: Yes (Life-Threatening, Hospitalization, Other)
  Sender: FDA-Public Use
  Company Number: FR-GILEAD-2015-0149863

PATIENT
  Age: 63 Year
  Sex: Male
  Weight: 55.5 kg

DRUGS (18)
  1. RITUXIMAB [Suspect]
     Active Substance: RITUXIMAB
     Indication: NON-HODGKIN^S LYMPHOMA UNSPECIFIED HISTOLOGY INDOLENT
     Dosage: 630 MG, CYCLICAL
     Route: 042
     Dates: start: 20150224, end: 20150521
  2. BACTRIM [Concomitant]
     Active Substance: SULFAMETHOXAZOLE\TRIMETHOPRIM
     Indication: INFECTION PROPHYLAXIS
     Dosage: UNK
     Dates: start: 20150224, end: 20150324
  3. ZOPHREN                            /00955301/ [Concomitant]
     Active Substance: ONDANSETRON
     Indication: PREMEDICATION
     Dosage: UNK
     Dates: start: 20150226
  4. SODIUM BICARBONATE. [Concomitant]
     Active Substance: SODIUM BICARBONATE
     Route: 048
  5. DEXERYL                            /01579901/ [Concomitant]
     Active Substance: GLYCERIN\MINERAL OIL\PARAFFIN
     Indication: DRY SKIN PROPHYLAXIS
     Dosage: UNK
     Dates: start: 20150224
  6. METHYLPREDNISOLONE. [Concomitant]
     Active Substance: METHYLPREDNISOLONE
     Indication: PREMEDICATION
     Dosage: UNK
     Dates: start: 20150224
  7. POLARAMINE [Concomitant]
     Active Substance: DEXCHLORPHENIRAMINE MALEATE
     Indication: PREMEDICATION
     Dosage: UNK
     Dates: start: 20150224
  8. SEROPLEX [Concomitant]
     Active Substance: ESCITALOPRAM OXALATE
     Route: 048
  9. MOVICOL [Concomitant]
     Active Substance: POLYETHYLENE GLYCOL 3350\POTASSIUM CHLORIDE\SODIUM BICARBONATE\SODIUM CHLORIDE
     Route: 048
  10. PARACETAMOL [Concomitant]
     Active Substance: ACETAMINOPHEN
     Indication: PREMEDICATION
     Dosage: UNK
     Dates: start: 20150224
  11. FOLINORAL [Concomitant]
     Active Substance: LEUCOVORIN CALCIUM
     Route: 048
  12. BENDAMUSTINE [Suspect]
     Active Substance: BENDAMUSTINE
     Indication: NON-HODGKIN^S LYMPHOMA UNSPECIFIED HISTOLOGY INDOLENT
     Dosage: 150 MG, CYCLICAL
     Route: 042
     Dates: start: 20150224, end: 20150616
  13. PRIMPERAN [Concomitant]
     Active Substance: METOCLOPRAMIDE HYDROCHLORIDE
     Indication: NAUSEA
     Dosage: UNK
     Dates: start: 20150224
  14. ZELTREX [Concomitant]
     Active Substance: VALACYCLOVIR HYDROCHLORIDE
     Indication: INFECTION PROPHYLAXIS
     Dosage: UNK
     Dates: start: 20150224, end: 20150324
  15. LEDERFOLINE [Concomitant]
     Active Substance: LEUCOVORIN CALCIUM
     Indication: PROPHYLAXIS
     Dosage: UNK
     Dates: start: 20150224
  16. PARACETAMOL [Concomitant]
     Active Substance: ACETAMINOPHEN
     Indication: INFUSION RELATED REACTION
     Dosage: UNK
     Dates: start: 20150616
  17. IDELALISIB [Suspect]
     Active Substance: IDELALISIB
     Indication: NON-HODGKIN^S LYMPHOMA UNSPECIFIED HISTOLOGY INDOLENT
     Dosage: 150 MG, BID
     Route: 048
     Dates: start: 20150224, end: 20150616
  18. PANTOPRAZOLE [Concomitant]
     Active Substance: PANTOPRAZOLE SODIUM
     Route: 048

REACTIONS (4)
  - Infusion related reaction [Recovered/Resolved]
  - Infusion related reaction [Recovered/Resolved]
  - Infusion related reaction [Recovered/Resolved]
  - Pneumocystis jirovecii pneumonia [Recovered/Resolved]

NARRATIVE: CASE EVENT DATE: 20150324
